FAERS Safety Report 12365709 (Version 4)
Quarter: 2017Q2

REPORT INFORMATION
  Report Type: Spontaneous
  Country: JP (occurrence: JP)
  Receive Date: 20160513
  Receipt Date: 20170523
  Transmission Date: 20170830
  Serious: Yes (Life-Threatening, Hospitalization, Other)
  Sender: FDA-Public Use
  Company Number: JP-GLAXOSMITHKLINE-JP2016JPN065616

PATIENT
  Age: 54 Year
  Sex: Female
  Weight: 45 kg

DRUGS (5)
  1. LITHIUM CARBONATE. [Suspect]
     Active Substance: LITHIUM CARBONATE
     Indication: AFFECTIVE DISORDER
     Dosage: 200 MG, QD
     Route: 048
  2. LAMICTAL [Suspect]
     Active Substance: LAMOTRIGINE
     Indication: BIPOLAR DISORDER
     Dosage: 25 MG, QD
     Route: 048
     Dates: start: 20151113, end: 20151126
  3. LAMICTAL [Suspect]
     Active Substance: LAMOTRIGINE
     Dosage: 50 MG, QD
     Route: 048
     Dates: start: 20151126, end: 20151126
  4. DEPAS [Suspect]
     Active Substance: ETIZOLAM
     Indication: INSOMNIA
     Dosage: 0.5 MG, QD
     Route: 048
  5. BENZALIN (NITRAZEPAM) [Suspect]
     Active Substance: NITRAZEPAM
     Indication: INSOMNIA
     Dosage: 2.5 MG, QD
     Route: 048

REACTIONS (10)
  - Perivascular dermatitis [Recovering/Resolving]
  - Stevens-Johnson syndrome [Recovered/Resolved]
  - Rash [Recovering/Resolving]
  - Generalised erythema [Recovering/Resolving]
  - Pyrexia [Recovering/Resolving]
  - Purpura [Recovering/Resolving]
  - Erythema multiforme [Unknown]
  - Ocular hyperaemia [Recovering/Resolving]
  - Lip erosion [Recovering/Resolving]
  - Erythema of eyelid [Recovering/Resolving]

NARRATIVE: CASE EVENT DATE: 20151120
